FAERS Safety Report 7483719-8 (Version None)
Quarter: 2011Q2

REPORT INFORMATION
  Report Type: 
  Country: None (occurrence: None)
  Receive Date: 20110517
  Receipt Date: 20110503
  Transmission Date: 20111010
  Serious: Yes (Hospitalization)
  Sender: FDA-Public Use
  Company Number: PHHY2011DE26196

PATIENT
  Age: 84 Year
  Sex: Female

DRUGS (5)
  1. BISOPROLOL FUMARATE [Suspect]
     Indication: HYPERTENSION
     Dosage: 1 DF, BID
     Route: 048
  2. GLYBURIDE [Concomitant]
     Indication: TYPE 2 DIABETES MELLITUS
  3. DIOVAN HCT [Suspect]
     Indication: HYPERTENSION
     Dosage: 160 MG OF VALS AND 12.5 MG OF HYD, UNK
     Route: 048
  4. NITROGLYCERIN [Suspect]
     Indication: HYPERTENSION
     Dosage: 1 DF, UNK
     Route: 060
  5. ASPIRIN [Concomitant]
     Dosage: 100 MG, UNK
     Route: 048

REACTIONS (9)
  - MALAISE [None]
  - TACHYARRHYTHMIA [None]
  - ATRIAL FIBRILLATION [None]
  - CIRCULATORY COLLAPSE [None]
  - SYNCOPE [None]
  - BLOOD CREATININE INCREASED [None]
  - HYPERHIDROSIS [None]
  - CREATININE RENAL CLEARANCE DECREASED [None]
  - BLOOD UREA INCREASED [None]
